FAERS Safety Report 16609151 (Version 2)
Quarter: 2019Q4

REPORT INFORMATION
  Report Type: Spontaneous
  Country: US (occurrence: US)
  Receive Date: 20190722
  Receipt Date: 20191107
  Transmission Date: 20200122
  Serious: Yes (Hospitalization, Other)
  Sender: FDA-Public Use
  Company Number: US-PFIZER INC-2019305864

PATIENT
  Age: 48 Year
  Sex: Female
  Weight: 61 kg

DRUGS (3)
  1. AMLODIPINE BESILATE [Suspect]
     Active Substance: AMLODIPINE BESYLATE
     Indication: BLOOD PRESSURE ABNORMAL
     Dosage: 1 TABLET ONCE A DAY
     Route: 048
  2. LABETALOL HYDROCHLORIDE. [Suspect]
     Active Substance: LABETALOL HYDROCHLORIDE
     Indication: BLOOD PRESSURE ABNORMAL
     Dosage: TABLET (COULD 100MG OR 200MG) TWICE A DAY
     Route: 048
  3. SIROLIMUS. [Suspect]
     Active Substance: SIROLIMUS
     Indication: LYMPHANGIOLEIOMYOMATOSIS
     Dosage: 1-2 MG, ONCE A DAY
     Route: 048
     Dates: start: 20150315, end: 20180206

REACTIONS (1)
  - Dermatitis bullous [Recovered/Resolved with Sequelae]

NARRATIVE: CASE EVENT DATE: 201506
